FAERS Safety Report 21147732 (Version 2)
Quarter: 2022Q3

REPORT INFORMATION
  Report Type: Spontaneous
  Country: US (occurrence: US)
  Receive Date: 20220729
  Receipt Date: 20220804
  Transmission Date: 20221027
  Serious: Yes (Hospitalization, Other)
  Sender: FDA-Public Use
  Company Number: US-009507513-2207USA006149

PATIENT
  Age: 54 Year
  Sex: Female

DRUGS (3)
  1. STROMECTOL [Suspect]
     Active Substance: IVERMECTIN
     Indication: Strongyloidiasis
     Dosage: UNK
  2. STROMECTOL [Suspect]
     Active Substance: IVERMECTIN
     Dosage: FIVE ROUNDS
  3. ALBENDAZOLE [Suspect]
     Active Substance: ALBENDAZOLE
     Indication: Strongyloidiasis
     Dosage: ONE ROUND

REACTIONS (2)
  - Eosinophilic pneumonia chronic [Recovered/Resolved]
  - Drug ineffective [Unknown]
